FAERS Safety Report 9246648 (Version 1)
Quarter: 2013Q2

REPORT INFORMATION
  Report Type: Spontaneous
  Country: US (occurrence: US)
  Receive Date: 20130422
  Receipt Date: 20130422
  Transmission Date: 20140414
  Serious: Yes (Other)
  Sender: FDA-Public Use
  Company Number: US-GILEAD-2013-0073840

PATIENT
  Age: 76 Year
  Sex: Female

DRUGS (3)
  1. RANEXA [Suspect]
     Indication: PRODUCT USED FOR UNKNOWN INDICATION
     Dosage: 500 MG, BID
     Route: 048
     Dates: start: 201208, end: 201209
  2. RANEXA [Suspect]
     Dosage: 500 MG, QD
     Route: 048
     Dates: start: 201209, end: 201304
  3. RANEXA [Suspect]
     Dosage: 1500 MG, QD
     Route: 048
     Dates: start: 201304

REACTIONS (6)
  - Angina pectoris [Unknown]
  - Weight decreased [Unknown]
  - Skin discolouration [Unknown]
  - Headache [Unknown]
  - Nausea [Unknown]
  - Asthenia [Unknown]
